FAERS Safety Report 16333789 (Version 2)
Quarter: 2019Q2

REPORT INFORMATION
  Report Type: Spontaneous
  Country: US (occurrence: US)
  Receive Date: 20190520
  Receipt Date: 20190619
  Transmission Date: 20190711
  Serious: No
  Sender: FDA-Public Use
  Company Number: US-CELGENEUS-USA-20190504884

PATIENT
  Age: 76 Year
  Sex: Male

DRUGS (2)
  1. OTEZLA [Suspect]
     Active Substance: APREMILAST
     Dosage: 60 MILLIGRAM
     Route: 048
     Dates: start: 20190324
  2. OTEZLA [Suspect]
     Active Substance: APREMILAST
     Indication: GUTTATE PSORIASIS
     Dosage: 60 MILLIGRAM
     Route: 048
     Dates: start: 201903

REACTIONS (5)
  - Weight decreased [Recovering/Resolving]
  - Frequent bowel movements [Recovering/Resolving]
  - Sensitive skin [Unknown]
  - Breast disorder male [Unknown]
  - Flatulence [Unknown]

NARRATIVE: CASE EVENT DATE: 201903
